FAERS Safety Report 9670213 (Version 1)
Quarter: 2013Q4

REPORT INFORMATION
  Report Type: Spontaneous
  Country: FR (occurrence: FR)
  Receive Date: 20131105
  Receipt Date: 20131105
  Transmission Date: 20140711
  Serious: Yes (Congenital Anomaly, Other)
  Sender: FDA-Public Use
  Company Number: FR-ABBVIE-13P-056-1164885-00

PATIENT
  Age: 2 Week
  Sex: Male

DRUGS (1)
  1. DEPAKINE [Suspect]
     Indication: MATERNAL EXPOSURE TIMING UNSPECIFIED
     Route: 064

REACTIONS (8)
  - Congenital absence of bile ducts [Recovering/Resolving]
  - Jaundice [Unknown]
  - Hepatomegaly [Unknown]
  - Faeces discoloured [Unknown]
  - Chromaturia [Unknown]
  - Foetal exposure during pregnancy [Unknown]
  - Poor weight gain neonatal [Unknown]
  - Effusion [Unknown]
